FAERS Safety Report 6500232-2 (Version None)
Quarter: 2009Q4

REPORT INFORMATION
  Report Type: 
  Country: None (occurrence: None)
  Receive Date: 20091215
  Receipt Date: 20091215
  Transmission Date: 20100525
  Serious: Yes (Other)
  Sender: FDA-Public Use
  Company Number: None

PATIENT
  Sex: Female
  Weight: 101 kg

DRUGS (1)
  1. FLUPHENAZINE [Suspect]
     Indication: SCHIZOPHRENIA
     Dosage: 17.5MG Q 3 WEEKS IM
     Route: 030
     Dates: start: 20091208

REACTIONS (1)
  - ELECTROCARDIOGRAM QT PROLONGED [None]
